FAERS Safety Report 12433554 (Version 1)
Quarter: 2016Q2

REPORT INFORMATION
  Report Type: Spontaneous
  Country: US (occurrence: US)
  Receive Date: 20160603
  Receipt Date: 20160603
  Transmission Date: 20160815
  Serious: Yes (Other)
  Sender: FDA-Public Use
  Company Number: US-BAYER-2016-103809

PATIENT
  Age: 89 Year
  Sex: Male
  Weight: 68.2 kg

DRUGS (2)
  1. MILK OF MAGNESIA ORIGINAL [Suspect]
     Active Substance: MAGNESIUM HYDROXIDE
     Indication: BOWEL MOVEMENT IRREGULARITY
  2. MIRALAX [Suspect]
     Active Substance: POLYETHYLENE GLYCOL 3350
     Indication: BOWEL MOVEMENT IRREGULARITY
     Dosage: 1 DF, QOD
     Route: 048
     Dates: start: 201506

REACTIONS (4)
  - Steatorrhoea [Recovered/Resolved]
  - Drug dependence [None]
  - Product use issue [None]
  - Faeces soft [Recovered/Resolved]

NARRATIVE: CASE EVENT DATE: 201506
